FAERS Safety Report 17704407 (Version 2)
Quarter: 2020Q2

REPORT INFORMATION
  Report Type: Spontaneous
  Country: US (occurrence: US)
  Receive Date: 20200424
  Receipt Date: 20200610
  Transmission Date: 20200714
  Serious: No
  Sender: FDA-Public Use
  Company Number: US-PFIZER INC-2019357487

PATIENT
  Age: 69 Year
  Sex: Female

DRUGS (4)
  1. RETACRIT [Suspect]
     Active Substance: EPOETIN ALFA-EPBX
     Indication: CHRONIC MYELOMONOCYTIC LEUKAEMIA (IN REMISSION)
     Dosage: 40000 IU (EVERY 2 WEEKS)
     Route: 058
  2. RETACRIT [Suspect]
     Active Substance: EPOETIN ALFA-EPBX
     Indication: ANAEMIA
     Dosage: 40000 IU, EVERY 2 WEEKS
     Route: 058
  3. RETACRIT [Suspect]
     Active Substance: EPOETIN ALFA-EPBX
     Indication: COLON CANCER
     Dosage: 40000 UNITS EVERY OTHER WEEK(4 VIALS OF 10,000 UNITS EVERY OTHER WEEK)
     Route: 058
  4. RETACRIT [Suspect]
     Active Substance: EPOETIN ALFA-EPBX
     Indication: CHRONIC MYELOMONOCYTIC LEUKAEMIA
     Dosage: 40000 IU, MONTHLY

REACTIONS (2)
  - Off label use [Unknown]
  - Haemoglobin decreased [Unknown]
